FAERS Safety Report 10570597 (Version 1)
Quarter: 2014Q4

REPORT INFORMATION
  Report Type: Spontaneous
  Country: CA (occurrence: CA)
  Receive Date: 20141107
  Receipt Date: 20141107
  Transmission Date: 20150529
  Serious: Yes (Other)
  Sender: FDA-Public Use
  Company Number: CA-009507513-1411CAN000910

PATIENT
  Sex: Male

DRUGS (3)
  1. COPEGUS [Suspect]
     Active Substance: RIBAVIRIN
     Indication: CHRONIC HEPATITIS C
     Dosage: 49 TABLET/WEEK = 1400MG/DAY (1400 MG,1 IN 1 DAY)
     Route: 048
     Dates: start: 20140402, end: 20141023
  2. PEGASYS [Suspect]
     Active Substance: PEGINTERFERON ALFA-2A
     Indication: CHRONIC HEPATITIS C
     Dosage: 0.5 ML PRE - FI LLED SYRINGE INJECTION (180 MCG,1 IN 1 WEEK)
     Route: 058
     Dates: start: 20140402, end: 20141023
  3. VICTRELIS [Suspect]
     Active Substance: BOCEPREVIR
     Indication: CHRONIC HEPATITIS C
     Dosage: 800 MG, 3 IN 1 DAY
     Route: 048
     Dates: start: 20140430, end: 20141023

REACTIONS (3)
  - Psoriasis [Unknown]
  - Rash [Unknown]
  - Weight decreased [Recovering/Resolving]

NARRATIVE: CASE EVENT DATE: 2014
